FAERS Safety Report 24391347 (Version 1)
Quarter: 2024Q4

REPORT INFORMATION
  Report Type: Spontaneous
  Country: US (occurrence: US)
  Receive Date: 20241003
  Receipt Date: 20241003
  Transmission Date: 20250115
  Serious: Yes (Other)
  Sender: DR REDDYS
  Company Number: US-DRL-USA-LIT/USA/24/0014276

PATIENT
  Age: 14 Year
  Sex: Male

DRUGS (10)
  1. OMEPRAZOLE [Suspect]
     Active Substance: OMEPRAZOLE
     Indication: Eosinophilic oesophagitis
     Dates: start: 202110
  2. OMEPRAZOLE [Suspect]
     Active Substance: OMEPRAZOLE
     Dates: start: 202101
  3. OMEPRAZOLE [Suspect]
     Active Substance: OMEPRAZOLE
     Dates: start: 202104
  4. OMEPRAZOLE [Suspect]
     Active Substance: OMEPRAZOLE
     Dates: start: 202108
  5. PREDNISOLONE [Concomitant]
     Active Substance: PREDNISOLONE
     Indication: Eosinophilic oesophagitis
     Dosage: FOR 1 WEEK
     Route: 048
     Dates: start: 202010
  6. PREDNISOLONE [Concomitant]
     Active Substance: PREDNISOLONE
     Dosage: FOR 1 WEEK
     Route: 048
     Dates: start: 202101
  7. PREDNISOLONE [Concomitant]
     Active Substance: PREDNISOLONE
     Dosage: FOR 4 WEEK FOLLOWED BY TAPER OVER 6 WEEK
     Route: 048
     Dates: start: 202108
  8. FLUTICASONE [Concomitant]
     Active Substance: FLUTICASONE
     Indication: Eosinophilic oesophagitis
     Dosage: 220 MG/PUFF 4 PUFFS BID
     Route: 048
     Dates: start: 202010
  9. FLUTICASONE [Concomitant]
     Active Substance: FLUTICASONE
     Dosage: 220 UG/PUFF 2 PUFFS BID
     Route: 048
     Dates: start: 202108
  10. BUDESONIDE [Concomitant]
     Active Substance: BUDESONIDE
     Indication: Eosinophilic oesophagitis
     Dosage: SLURRY
     Route: 048
     Dates: start: 202010

REACTIONS (1)
  - Drug ineffective for unapproved indication [Unknown]
